FAERS Safety Report 7936152-6 (Version None)
Quarter: 2011Q4

REPORT INFORMATION
  Report Type: 
  Country: None (occurrence: None)
  Receive Date: 20111123
  Receipt Date: 20111116
  Transmission Date: 20120403
  Serious: Yes (Other)
  Sender: FDA-Public Use
  Company Number: FR-JNJFOC-20110907426

PATIENT
  Age: 30 Year
  Sex: Female
  Weight: 72 kg

DRUGS (5)
  1. ANDROCUR [Concomitant]
     Indication: HYPERANDROGENISM
     Dosage: X 10 YEARS
     Route: 048
  2. REMICADE [Suspect]
     Dosage: 10TH INFUSION
     Route: 042
     Dates: start: 20110912
  3. CONTRACEPTION [Concomitant]
     Dosage: X 10 YEARS
     Route: 048
  4. OROMONE [Concomitant]
     Indication: HYPERANDROGENISM
  5. REMICADE [Suspect]
     Indication: PSORIASIS
     Route: 042
     Dates: start: 20100423

REACTIONS (3)
  - WEIGHT INCREASED [None]
  - PYELONEPHRITIS [None]
  - URINARY TRACT INFECTION [None]
